FAERS Safety Report 17755918 (Version 2)
Quarter: 2020Q2

REPORT INFORMATION
  Report Type: Spontaneous
  Country: ES (occurrence: ES)
  Receive Date: 20200507
  Receipt Date: 20200511
  Transmission Date: 20200714
  Serious: Yes (Hospitalization)
  Sender: FDA-Public Use
  Company Number: ES-ASTRAZENECA-2020SE59415

PATIENT
  Age: 81 Year
  Sex: Male

DRUGS (4)
  1. ISOSORBIDA MONONITRATO [Concomitant]
     Active Substance: ISOSORBIDE MONONITRATE
     Indication: ANGINA UNSTABLE
     Route: 048
     Dates: start: 20151223
  2. ADIRO [Suspect]
     Active Substance: ASPIRIN
     Indication: CARDIOVASCULAR DISORDER
     Route: 048
     Dates: start: 20151001
  3. BISOPROLOL [Concomitant]
     Active Substance: BISOPROLOL
     Indication: ANGINA UNSTABLE
     Route: 048
     Dates: start: 20151223
  4. OMEPRAZOL [Suspect]
     Active Substance: OMEPRAZOLE
     Indication: ANGINA UNSTABLE
     Route: 048
     Dates: start: 20170404

REACTIONS (2)
  - Gastric haemorrhage [Recovering/Resolving]
  - Intercepted medication error [Recovering/Resolving]

NARRATIVE: CASE EVENT DATE: 20200421
